FAERS Safety Report 5302131-0 (Version None)
Quarter: 2007Q2

REPORT INFORMATION
  Report Type: 
  Country: None (occurrence: None)
  Receive Date: 20070419
  Receipt Date: 20070417
  Transmission Date: 20071010
  Serious: Yes (Hospitalization)
  Sender: FDA-Public Use
  Company Number: DE-GLAXOSMITHKLINE-D0052960A

PATIENT
  Age: 39 Year
  Sex: Male
  Weight: 82 kg

DRUGS (6)
  1. QUILONUM RETARD [Suspect]
     Dosage: 450MG SEE DOSAGE TEXT
     Route: 048
     Dates: start: 20070416, end: 20070416
  2. PARACETAMOL [Suspect]
     Dosage: 500MG SEE DOSAGE TEXT
     Route: 048
     Dates: start: 20070416, end: 20070416
  3. PENICILLIN MEGA [Suspect]
     Dosage: 885MG SEE DOSAGE TEXT
     Route: 048
     Dates: start: 20070416, end: 20070416
  4. VENLAFAXINE HCL [Suspect]
     Dosage: 150MG SEE DOSAGE TEXT
     Route: 048
     Dates: start: 20070416, end: 20070416
  5. ZOPICLON [Suspect]
     Dosage: 7.5MG SEE DOSAGE TEXT
     Route: 048
     Dates: start: 20070416, end: 20070416
  6. ZYPREXA [Suspect]
     Dosage: 2.5MG SEE DOSAGE TEXT
     Route: 048
     Dates: start: 20070416, end: 20070416

REACTIONS (4)
  - FATIGUE [None]
  - INTENTIONAL OVERDOSE [None]
  - SUICIDE ATTEMPT [None]
  - VOMITING [None]
